FAERS Safety Report 4969944-6 (Version None)
Quarter: 2006Q1

REPORT INFORMATION
  Report Type: 
  Country: None (occurrence: None)
  Receive Date: 20060202
  Receipt Date: 20050425
  Transmission Date: 20060701
  Serious: Yes (Other)
  Sender: FDA-Public Use
  Company Number: PHEH2005US03572

PATIENT
  Sex: Male
  Weight: 21 kg

DRUGS (1)
  1. RITALIN LA [Suspect]
     Dosage: 20 MG, ONCE/SINGLE, ORAL
     Route: 048
     Dates: start: 20050321, end: 20050321

REACTIONS (2)
  - DYSKINESIA [None]
  - MUSCLE TWITCHING [None]
